FAERS Safety Report 11352288 (Version 2)
Quarter: 2015Q3

REPORT INFORMATION
  Report Type: Spontaneous
  Country: US (occurrence: US)
  Receive Date: 20150807
  Receipt Date: 20150818
  Transmission Date: 20151125
  Serious: Yes (Other)
  Sender: FDA-Public Use
  Company Number: US-AUROBINDO-AUR-APU-2015-06654

PATIENT
  Sex: Male
  Weight: 82 kg

DRUGS (5)
  1. LYRICA [Suspect]
     Active Substance: PREGABALIN
     Indication: NEUROPATHY PERIPHERAL
     Dosage: 150 MG, TWO TIMES A DAY
     Route: 048
     Dates: start: 2011, end: 201501
  2. LYRICA [Suspect]
     Active Substance: PREGABALIN
     Dosage: 300 MG, DAILY
     Route: 065
  3. ASPIRIN. [Concomitant]
     Active Substance: ASPIRIN
     Indication: CEREBROVASCULAR ACCIDENT
     Dosage: 325 MG, UNK
     Route: 065
  4. GABAPENTIN CAPSULES [Suspect]
     Active Substance: GABAPENTIN
     Indication: NEUROPATHY PERIPHERAL
     Dosage: 1800 MG, TWO TIMES A DAY
     Route: 048
     Dates: start: 201501
  5. TRAMADOL. [Concomitant]
     Active Substance: TRAMADOL
     Indication: ARTHRITIS
     Route: 065

REACTIONS (3)
  - Transient ischaemic attack [Unknown]
  - Drug ineffective [Unknown]
  - Hernia repair [Unknown]
